FAERS Safety Report 24020885 (Version 1)
Quarter: 2024Q2

REPORT INFORMATION
  Report Type: Report from Study
  Country: BY (occurrence: BY)
  Receive Date: 20240627
  Receipt Date: 20240627
  Transmission Date: 20240715
  Serious: Yes (Death)
  Sender: FDA-Public Use
  Company Number: BY-MYLANLABS-2024M1058406

PATIENT
  Age: 79 Year
  Sex: Female
  Weight: 67.1 kg

DRUGS (10)
  1. PRETOMANID [Suspect]
     Active Substance: PRETOMANID
     Indication: Tuberculosis
     Dosage: 200 MILLIGRAM, QD
     Route: 048
     Dates: start: 20220623, end: 20221216
  2. BEDAQUILINE [Suspect]
     Active Substance: BEDAQUILINE
     Indication: Tuberculosis
     Dosage: 400 MILLIGRAM, QD (FOR 2 WEEKS)
     Route: 048
     Dates: start: 20220623
  3. BEDAQUILINE [Suspect]
     Active Substance: BEDAQUILINE
     Dosage: 200 MILLIGRAM, 3XW
     Route: 048
     Dates: end: 20221216
  4. LINEZOLID [Suspect]
     Active Substance: LINEZOLID
     Indication: Tuberculosis
     Dosage: 600 MILLIGRAM, QD (16 WEEKS)
     Route: 048
     Dates: start: 20220623
  5. LINEZOLID [Suspect]
     Active Substance: LINEZOLID
     Dosage: 300 MILLIGRAM, QD
     Route: 048
     Dates: end: 20221216
  6. MOXIFLOXACIN [Suspect]
     Active Substance: MOXIFLOXACIN
     Indication: Tuberculosis
     Dosage: 400 MILLIGRAM, QD
     Route: 048
     Dates: start: 20220623, end: 20221216
  7. ASPICARD [Concomitant]
     Indication: Cardiac failure
     Dosage: 75 MILLIGRAM, QD
     Route: 048
     Dates: start: 20220617, end: 20230814
  8. ENALAPRIL [Concomitant]
     Active Substance: ENALAPRIL
     Indication: Hypertension
     Dosage: 5 MILLIGRAM, QD
     Route: 048
     Dates: start: 20220617, end: 20230814
  9. FUROSEMIDE [Concomitant]
     Active Substance: FUROSEMIDE
     Indication: Cardiac failure
     Dosage: 40 MILLIGRAM, 3XW
     Route: 048
     Dates: start: 20220617, end: 20230814
  10. PROTAMINE [Concomitant]
     Active Substance: PROTAMINE
     Indication: Type 2 diabetes mellitus
     Dosage: 10 INTERNATIONAL UNIT AT 22.00
     Route: 058
     Dates: start: 20220617, end: 20230814

REACTIONS (1)
  - Cardiac failure [Fatal]

NARRATIVE: CASE EVENT DATE: 20230815
